FAERS Safety Report 18228617 (Version 1)
Quarter: 2020Q3

REPORT INFORMATION
  Report Type: Spontaneous
  Country: US (occurrence: US)
  Receive Date: 20200903
  Receipt Date: 20200903
  Transmission Date: 20201103
  Serious: No
  Sender: FDA-Public Use
  Company Number: US-BECTON DICKINSON-2020BDN00129

PATIENT
  Sex: Female
  Weight: 67.57 kg

DRUGS (6)
  1. WARFARIN [Concomitant]
     Active Substance: WARFARIN
  2. REMODULIN [Suspect]
     Active Substance: TREPROSTINIL
     Indication: PULMONARY ARTERIAL HYPERTENSION
     Dosage: 0.087 ?G/KG, CONTINUOUS IV DRIP
     Route: 042
     Dates: start: 20151204
  3. CHLORAPREP [Suspect]
     Active Substance: CHLORHEXIDINE GLUCONATE\ISOPROPYL ALCOHOL
     Indication: INFECTION PROPHYLAXIS
     Dosage: UNK
     Route: 061
  4. BIOPATCH [Suspect]
     Active Substance: CHLORHEXIDINE
  5. ADEMPAS [Concomitant]
     Active Substance: RIOCIGUAT
  6. LETAIRIS [Concomitant]
     Active Substance: AMBRISENTAN

REACTIONS (1)
  - Hypersensitivity [Recovered/Resolved]
